FAERS Safety Report 7045739-7 (Version None)
Quarter: 2010Q4

REPORT INFORMATION
  Report Type: 
  Country: None (occurrence: None)
  Receive Date: 20101014
  Receipt Date: 20101005
  Transmission Date: 20110411
  Serious: Yes (Disabling, Other)
  Sender: FDA-Public Use
  Company Number: CA-MERCK-1010USA00604

PATIENT
  Age: 53 Year
  Sex: Male
  Weight: 54 kg

DRUGS (7)
  1. ISENTRESS [Suspect]
     Route: 048
  2. CELSENTRI [Suspect]
     Route: 048
  3. CHAMPIX [Concomitant]
     Route: 065
  4. COMBIVIR [Suspect]
     Route: 048
  5. INTELENCE [Suspect]
     Route: 048
  6. PREZISTA [Suspect]
     Route: 048
  7. RITONAVIR [Suspect]
     Route: 048

REACTIONS (7)
  - ALANINE AMINOTRANSFERASE INCREASED [None]
  - ASPARTATE AMINOTRANSFERASE INCREASED [None]
  - BLOOD CREATINE PHOSPHOKINASE INCREASED [None]
  - JOINT SWELLING [None]
  - MUSCULAR WEAKNESS [None]
  - OEDEMA PERIPHERAL [None]
  - RASH MORBILLIFORM [None]
